FAERS Safety Report 8258370-2 (Version None)
Quarter: 2012Q1

REPORT INFORMATION
  Report Type: 
  Country: None (occurrence: None)
  Receive Date: 20120322
  Receipt Date: 20120221
  Transmission Date: 20120608
  Serious: Yes (Hospitalization)
  Sender: FDA-Public Use
  Company Number: UTC-015052

PATIENT
  Age: 62 Year
  Sex: Female
  Weight: 72.7 kg

DRUGS (3)
  1. REVATIO [Concomitant]
  2. TYVASO [Suspect]
     Indication: COR PULMONALE CHRONIC
     Dosage: 18 TO 72 MICROGRAMS (4 IN 1 D), INHALATION
     Route: 055
     Dates: start: 20100127
  3. TRACLEER [Concomitant]

REACTIONS (2)
  - GASTROENTERITIS VIRAL [None]
  - DEHYDRATION [None]
